FAERS Safety Report 7943100-1 (Version None)
Quarter: 2011Q4

REPORT INFORMATION
  Report Type: 
  Country: None (occurrence: None)
  Receive Date: 20111128
  Receipt Date: 20111115
  Transmission Date: 20120403
  Serious: Yes (Other)
  Sender: FDA-Public Use
  Company Number: PHEH2011US009434

PATIENT
  Age: 68 Year
  Sex: Female

DRUGS (19)
  1. SANDOSTATIN [Suspect]
     Dosage: 2 DF, (100MCG) Q12H
  2. PERCOCET [Concomitant]
  3. ZEDIM [Concomitant]
  4. VISTRAL [Concomitant]
  5. ACETYLSALICYLIC ACID SRT [Concomitant]
  6. ATENOLOL [Concomitant]
  7. LASIX [Concomitant]
  8. MULTI-VITAMINS [Concomitant]
  9. NITROGLYCERIN [Concomitant]
  10. SANDOSTATIN LAR [Suspect]
  11. LEVOXYL [Concomitant]
  12. NEURONTIN [Suspect]
     Dosage: 3 DF, (300MG) DAILY
  13. LIPITOR [Concomitant]
  14. NEXIUM [Concomitant]
  15. LANTUS [Concomitant]
  16. ISOSORBIDE DINITRATE [Concomitant]
  17. PLAVIX [Concomitant]
  18. VITAMIN D [Concomitant]
     Dosage: 50.000 UKN, UNK
  19. TRILIPIX [Concomitant]

REACTIONS (3)
  - RENAL IMPAIRMENT [None]
  - INCORRECT DOSE ADMINISTERED [None]
  - MALAISE [None]
